FAERS Safety Report 6614406-3 (Version None)
Quarter: 2010Q1

REPORT INFORMATION
  Report Type: 
  Country: None (occurrence: None)
  Receive Date: 20100303
  Receipt Date: 20100303
  Transmission Date: 20100710
  Serious: No
  Sender: FDA-Public Use
  Company Number: None

PATIENT
  Sex: Male
  Weight: 84.369 kg

DRUGS (2)
  1. PAROXETINE HCL [Suspect]
     Indication: ANXIETY
     Dosage: 10MG ONCE QD ORAL
     Route: 048
     Dates: start: 20090201, end: 20100201
  2. PAROXETINE HCL [Suspect]
     Indication: DEPRESSION
     Dosage: 10MG ONCE QD ORAL
     Route: 048
     Dates: start: 20090201, end: 20100201

REACTIONS (4)
  - INSOMNIA [None]
  - PRODUCT SUBSTITUTION ISSUE [None]
  - PRURITUS [None]
  - RASH [None]
